FAERS Safety Report 16961740 (Version 3)
Quarter: 2021Q2

REPORT INFORMATION
  Report Type: Spontaneous
  Country: US (occurrence: US)
  Receive Date: 20191025
  Receipt Date: 20210421
  Transmission Date: 20210716
  Serious: Yes (Other)
  Sender: FDA-Public Use
  Company Number: US-PFIZER INC-2019452077

PATIENT
  Age: 72 Year
  Sex: Female
  Weight: 61.22 kg

DRUGS (4)
  1. LIMBITROL [Concomitant]
     Active Substance: AMITRIPTYLINE\CHLORDIAZEPOXIDE
     Indication: MULTIPLE SCLEROSIS
     Dosage: 5/12.5 MG, THREE TIMES A DAY
  2. SKELAXIN [Suspect]
     Active Substance: METAXALONE
     Indication: INTERVERTEBRAL DISC PROTRUSION
     Dosage: 0.5 DF, UNK
  3. SKELAXIN [Suspect]
     Active Substance: METAXALONE
     Indication: INTERVERTEBRAL DISC PROTRUSION
     Dosage: 800MG, TWICE A DAY
  4. SKELAXIN [Suspect]
     Active Substance: METAXALONE
     Dosage: 0.25 DF, UNK

REACTIONS (2)
  - Drug dependence [Unknown]
  - Intentional product use issue [Unknown]
